FAERS Safety Report 17650229 (Version 1)
Quarter: 2020Q2

REPORT INFORMATION
  Report Type: Spontaneous
  Country: US (occurrence: US)
  Receive Date: 20200409
  Receipt Date: 20200409
  Transmission Date: 20200713
  Serious: Yes (Hospitalization)
  Sender: FDA-Public Use
  Company Number: None

PATIENT
  Age: 82 Year
  Sex: Female

DRUGS (1)
  1. APIXABAN [Suspect]
     Active Substance: APIXABAN
     Indication: ATRIAL FIBRILLATION
     Route: 048
     Dates: start: 20190927, end: 20200407

REACTIONS (9)
  - Device adhesion issue [None]
  - Discoloured vomit [None]
  - Dizziness [None]
  - Hypovolaemia [None]
  - Peptic ulcer [None]
  - Haematochezia [None]
  - Upper gastrointestinal haemorrhage [None]
  - Full blood count decreased [None]
  - Acute kidney injury [None]

NARRATIVE: CASE EVENT DATE: 20200407
